FAERS Safety Report 8354096-5 (Version None)
Quarter: 2012Q2

REPORT INFORMATION
  Report Type: 
  Country: None (occurrence: None)
  Receive Date: 20120511
  Receipt Date: 20120508
  Transmission Date: 20120825
  Serious: Yes (Life-Threatening, Hospitalization)
  Sender: FDA-Public Use
  Company Number: US-B.I. PHARMACEUTICALS,INC./RIDGEFIELD-2012-BP-07045BP

PATIENT
  Sex: Female
  Weight: 60.78 kg

DRUGS (5)
  1. DOXASOZIN [Concomitant]
     Dosage: 2 MG
  2. FOSINOPRIL SODIUM [Concomitant]
     Dosage: 20 MG
  3. MULTI-VITAMIN [Concomitant]
  4. PRADAXA [Suspect]
     Indication: ATRIAL FIBRILLATION
     Dosage: 150 MG
     Route: 048
     Dates: start: 20110301, end: 20120401
  5. DILTIAZEM [Concomitant]
     Dosage: 360 NR

REACTIONS (4)
  - GASTRITIS HAEMORRHAGIC [None]
  - PERIPHERAL EMBOLISM [None]
  - MELAENA [None]
  - GLOMERULAR FILTRATION RATE ABNORMAL [None]
